FAERS Safety Report 9593428 (Version 1)
Quarter: 2013Q3

REPORT INFORMATION
  Report Type: Spontaneous
  Country: US (occurrence: None)
  Receive Date: 20130930
  Receipt Date: 20130930
  Transmission Date: 20140515
  Serious: Yes (Other)
  Sender: FDA-Public Use
  Company Number: 1000045969

PATIENT
  Age: 46 Year
  Sex: Female

DRUGS (2)
  1. LINZESS (LINACLOTIDE) [Suspect]
     Indication: IRRITABLE BOWEL SYNDROME
     Route: 048
     Dates: start: 201304
  2. VIIBRYD (VILAZODONE) [Suspect]
     Indication: DEPRESSION
     Route: 048
     Dates: start: 201304, end: 2013

REACTIONS (5)
  - Diarrhoea [None]
  - Incontinence [None]
  - Insomnia [None]
  - Feeling abnormal [None]
  - Drug effect increased [None]
